FAERS Safety Report 25322192 (Version 1)
Quarter: 2025Q2

REPORT INFORMATION
  Report Type: Other
  Country: JP (occurrence: JP)
  Receive Date: 20250516
  Receipt Date: 20250516
  Transmission Date: 20250716
  Serious: Yes (Hospitalization, Other)
  Sender: ESJAY PHARMA
  Company Number: JP-ESJAY PHARMA-000600

PATIENT
  Sex: Male

DRUGS (6)
  1. RISPERIDONE [Suspect]
     Active Substance: RISPERIDONE
     Indication: Psychotic disorder
  2. DONEPEZIL [Suspect]
     Active Substance: DONEPEZIL
     Indication: Cognitive disorder
  3. TRAZODONE [Concomitant]
     Active Substance: TRAZODONE HYDROCHLORIDE
     Indication: Psychotic disorder
  4. TRAZODONE [Concomitant]
     Active Substance: TRAZODONE HYDROCHLORIDE
     Indication: Depression
  5. RISPERIDONE [Suspect]
     Active Substance: RISPERIDONE
     Indication: Depression
  6. DONEPEZIL [Suspect]
     Active Substance: DONEPEZIL
     Indication: Cognitive disorder

REACTIONS (2)
  - Neuroleptic malignant syndrome [Recovered/Resolved]
  - Drug interaction [Unknown]
